FAERS Safety Report 17527220 (Version 1)
Quarter: 2020Q1

REPORT INFORMATION
  Report Type: Spontaneous
  Country: US (occurrence: US)
  Receive Date: 20200311
  Receipt Date: 20200311
  Transmission Date: 20200409
  Serious: No
  Sender: FDA-Public Use
  Company Number: US-PFIZER INC-2020104823

PATIENT

DRUGS (1)
  1. VIAGRA [Suspect]
     Active Substance: SILDENAFIL CITRATE
     Indication: NOCTURIA
     Dosage: 100 MG, 1X/DAY (100 MG A DAY BEFORE SLEEP)

REACTIONS (2)
  - Drug effective for unapproved indication [Unknown]
  - Intentional product misuse [Unknown]
